FAERS Safety Report 16920510 (Version 4)
Quarter: 2019Q4

REPORT INFORMATION
  Report Type: Report from Study
  Country: US (occurrence: US)
  Receive Date: 20191015
  Receipt Date: 20191211
  Transmission Date: 20200122
  Serious: Yes (Hospitalization, Other)
  Sender: FDA-Public Use
  Company Number: US-GILEAD-2019-0433038

PATIENT
  Age: 49 Year
  Sex: Female

DRUGS (2)
  1. AZTREONAM LYSINE [Suspect]
     Active Substance: AZTREONAM LYSINE
     Indication: CYSTIC FIBROSIS
     Dosage: 75 MG, TID 28DAYS THEN 28DAYS OFF
     Route: 055
     Dates: start: 20171003
  2. AZTREONAM LYSINE [Suspect]
     Active Substance: AZTREONAM LYSINE
     Dosage: 75 MG, TID 28DAYS THEN 28DAYS OFF
     Route: 055
     Dates: start: 2012

REACTIONS (5)
  - Lung disorder [Recovering/Resolving]
  - Cystic fibrosis respiratory infection suppression [Unknown]
  - Dyspnoea [Unknown]
  - Cystic fibrosis [Unknown]
  - Hyperthyroidism [Unknown]

NARRATIVE: CASE EVENT DATE: 20191101
